FAERS Safety Report 20109643 (Version 1)
Quarter: 2021Q4

REPORT INFORMATION
  Report Type: Report from Study
  Country: CA (occurrence: CA)
  Receive Date: 20211124
  Receipt Date: 20211124
  Transmission Date: 20220303
  Serious: Yes (Other)
  Sender: FDA-Public Use
  Company Number: CA-NOVARTISPH-NVSC2021CA266028

PATIENT
  Sex: Female

DRUGS (1)
  1. KESIMPTA [Suspect]
     Active Substance: OFATUMUMAB
     Indication: Secondary progressive multiple sclerosis
     Dosage: UNK
     Route: 058
     Dates: start: 20210923

REACTIONS (5)
  - Blood pressure increased [Unknown]
  - Dizziness [Unknown]
  - Vertigo [Unknown]
  - Dysphonia [Unknown]
  - Nasal congestion [Unknown]
